FAERS Safety Report 8225440-4 (Version None)
Quarter: 2012Q1

REPORT INFORMATION
  Report Type: 
  Country: None (occurrence: None)
  Receive Date: 20120321
  Receipt Date: 20120315
  Transmission Date: 20120608
  Serious: Yes (Death)
  Sender: FDA-Public Use
  Company Number: US-ELI_LILLY_AND_COMPANY-US201112005328

PATIENT
  Sex: Female

DRUGS (2)
  1. ADCIRCA [Suspect]
     Dosage: 40 MG, QD
     Dates: start: 20110519
  2. EPOPROSTENOL [Concomitant]
     Route: 042

REACTIONS (1)
  - DISEASE PROGRESSION [None]
